FAERS Safety Report 4975509-2 (Version None)
Quarter: 2006Q2

REPORT INFORMATION
  Report Type: 
  Country: None (occurrence: None)
  Receive Date: 20060417
  Receipt Date: 20060417
  Transmission Date: 20061013
  Serious: Yes (Other)
  Sender: FDA-Public Use
  Company Number: None

PATIENT
  Sex: Male
  Weight: 92.5 kg

DRUGS (1)
  1. ERBITUX [Suspect]
     Indication: LUNG SQUAMOUS CELL CARCINOMA STAGE UNSPECIFIED
     Dosage: 400 MG
     Dates: start: 20060320, end: 20060404

REACTIONS (5)
  - BLOOD PRESSURE DECREASED [None]
  - HYPOALBUMINAEMIA [None]
  - OEDEMA PERIPHERAL [None]
  - RASH [None]
  - WHITE BLOOD CELL COUNT DECREASED [None]
